FAERS Safety Report 12228082 (Version 1)
Quarter: 2016Q2

REPORT INFORMATION
  Report Type: Spontaneous
  Country: US (occurrence: US)
  Receive Date: 20160401
  Receipt Date: 20160401
  Transmission Date: 20160815
  Serious: No
  Sender: FDA-Public Use
  Company Number: US-TEVA-642583ACC

PATIENT
  Age: 31 Year
  Sex: Female
  Weight: 46.31 kg

DRUGS (2)
  1. PLAN B ONE-STEP [Suspect]
     Active Substance: LEVONORGESTREL
     Indication: POST COITAL CONTRACEPTION
     Dates: start: 20160214, end: 20160214
  2. LOESTRIN 24 [Concomitant]
     Indication: CONTRACEPTION

REACTIONS (6)
  - Decreased appetite [Not Recovered/Not Resolved]
  - Abdominal distension [Recovered/Resolved]
  - Breast tenderness [Unknown]
  - Withdrawal bleed [Recovered/Resolved]
  - Hiccups [Not Recovered/Not Resolved]
  - Dyspepsia [Not Recovered/Not Resolved]

NARRATIVE: CASE EVENT DATE: 20160216
